FAERS Safety Report 24206630 (Version 2)
Quarter: 2024Q4

REPORT INFORMATION
  Report Type: Spontaneous
  Country: JP (occurrence: JP)
  Receive Date: 20240813
  Receipt Date: 20241129
  Transmission Date: 20250115
  Serious: Yes (Other)
  Sender: JAZZ
  Company Number: JP-JAZZ PHARMACEUTICALS-2024-JP-011202

PATIENT
  Age: 55 Year
  Sex: Male

DRUGS (4)
  1. VYXEOS [Suspect]
     Active Substance: CYTARABINE\DAUNORUBICIN
     Indication: Acute myeloid leukaemia
     Dosage: 100 UNITS PER SQUARE METER
     Route: 042
     Dates: start: 20240625, end: 20240630
  2. VIDAZA [Suspect]
     Active Substance: AZACITIDINE
     Indication: Myelodysplastic syndrome with excess blasts
     Dosage: UNK
     Route: 042
     Dates: start: 202403, end: 202406
  3. VENCLEXTA [Concomitant]
     Active Substance: VENETOCLAX
     Indication: Myelodysplastic syndrome with excess blasts
     Dosage: UNK
     Dates: start: 202406, end: 202406
  4. PREDNISOLONE [Concomitant]
     Active Substance: PREDNISOLONE
     Indication: Product used for unknown indication
     Dosage: 20 MILLIGRAM
     Dates: start: 20240713

REACTIONS (8)
  - Acute erythroid leukaemia [Unknown]
  - Platelet count decreased [Unknown]
  - Febrile neutropenia [Unknown]
  - Drug eruption [Recovered/Resolved]
  - Dermatitis [Unknown]
  - Herpes simplex viraemia [Recovering/Resolving]
  - Oral herpes [Recovering/Resolving]
  - Therapeutic product effect incomplete [Not Recovered/Not Resolved]

NARRATIVE: CASE EVENT DATE: 20240101
